FAERS Safety Report 15329231 (Version 1)
Quarter: 2018Q3

REPORT INFORMATION
  Report Type: Spontaneous
  Country: US (occurrence: US)
  Receive Date: 20180829
  Receipt Date: 20180829
  Transmission Date: 20181010
  Serious: No
  Sender: FDA-Public Use
  Company Number: US-TEVA-2018-US-949558

PATIENT
  Sex: Female

DRUGS (1)
  1. NEOMYCIN. [Suspect]
     Active Substance: NEOMYCIN
     Indication: ERYTHEMA
     Dosage: 5000 IU / 3.5 MG / 400 IU / G
     Route: 065

REACTIONS (2)
  - Application site rash [Recovered/Resolved]
  - Product use in unapproved indication [Unknown]
